FAERS Safety Report 8062801-0 (Version None)
Quarter: 2012Q1

REPORT INFORMATION
  Report Type: 
  Country: None (occurrence: None)
  Receive Date: 20120118
  Receipt Date: 20120110
  Transmission Date: 20120608
  Serious: Yes (Other)
  Sender: FDA-Public Use
  Company Number: 2012SP001995

PATIENT
  Age: 61 Year
  Sex: Female

DRUGS (1)
  1. DULERA ORAL INHALATION [Suspect]
     Indication: PRODUCT USED FOR UNKNOWN INDICATION
     Dosage: 2 DF;BID;INH
     Route: 055

REACTIONS (3)
  - BLOOD POTASSIUM DECREASED [None]
  - FAMILIAL PERIODIC PARALYSIS [None]
  - MUSCULAR WEAKNESS [None]
